FAERS Safety Report 5141478-8 (Version None)
Quarter: 2006Q4

REPORT INFORMATION
  Report Type: 
  Country: None (occurrence: None)
  Receive Date: 20061101
  Receipt Date: 20061024
  Transmission Date: 20070319
  Serious: Yes (Life-Threatening, Hospitalization)
  Sender: FDA-Public Use
  Company Number: US-JNJFOC-20060702864

PATIENT
  Sex: Female
  Weight: 60.33 kg

DRUGS (14)
  1. REMICADE [Suspect]
     Route: 042
  2. REMICADE [Suspect]
     Indication: RHEUMATOID ARTHRITIS
     Route: 042
  3. PREDNISONE TAB [Concomitant]
  4. ARAVA [Concomitant]
  5. ANTI-TUBERCULOSIS MEDICATION [Concomitant]
  6. ESTROPIPATE [Concomitant]
     Dosage: DOSE 0.625  1/2 DAILY
  7. MEDROXYPROGESTERONE [Concomitant]
     Dosage: DOSE 2.5 DAILY
  8. MULTI-VITAMIN [Concomitant]
  9. ASCORBIC ACID [Concomitant]
  10. GLUCOSAMINE AND CHONDROITIN [Concomitant]
  11. CALCIUM AND VITAMIN D [Concomitant]
     Dosage: ^2X^
  12. FLAXSEED OIL [Concomitant]
  13. AVAPRO [Concomitant]
  14. ARANESP [Concomitant]
     Dosage: EVERY 2 WEEKS IF HB UNDER 12MGS

REACTIONS (5)
  - ACUTE PULMONARY OEDEMA [None]
  - CARDIAC FAILURE CONGESTIVE [None]
  - HYPERTENSION [None]
  - HYPERTENSIVE HEART DISEASE [None]
  - INFUSION RELATED REACTION [None]
